FAERS Safety Report 23719774 (Version 2)
Quarter: 2024Q2

REPORT INFORMATION
  Report Type: Spontaneous
  Country: US (occurrence: US)
  Receive Date: 20240408
  Receipt Date: 20240426
  Transmission Date: 20240716
  Serious: Yes (Other)
  Sender: FDA-Public Use
  Company Number: US-ORGANON-O2402USA002961

PATIENT
  Sex: Male

DRUGS (2)
  1. PREGNYL [Suspect]
     Active Substance: CHORIOGONADOTROPIN ALFA
     Dosage: 1000 INTERNATIONAL UNIT
     Route: 065
     Dates: start: 20240227
  2. STERILE WATER [Suspect]
     Active Substance: WATER
     Dosage: UNK
     Dates: start: 20240227

REACTIONS (5)
  - Blindness [Unknown]
  - Erectile dysfunction [Unknown]
  - Hallucination, auditory [Unknown]
  - Product quality issue [Unknown]
  - Poor quality product administered [Unknown]

NARRATIVE: CASE EVENT DATE: 20240227
